FAERS Safety Report 17724422 (Version 1)
Quarter: 2020Q2

REPORT INFORMATION
  Report Type: Spontaneous
  Country: US (occurrence: US)
  Receive Date: 20200429
  Receipt Date: 20200429
  Transmission Date: 20200714
  Serious: Yes (Other)
  Sender: FDA-Public Use
  Company Number: US-009507513-2004USA008462

PATIENT
  Sex: Male

DRUGS (1)
  1. KEYTRUDA [Suspect]
     Active Substance: PEMBROLIZUMAB
     Indication: PULMONARY MASS

REACTIONS (4)
  - Hypoaesthesia [Unknown]
  - Product use in unapproved indication [Unknown]
  - Hemiparesis [Unknown]
  - Headache [Unknown]
